FAERS Safety Report 23979311 (Version 2)
Quarter: 2025Q2

REPORT INFORMATION
  Report Type: Spontaneous
  Country: US (occurrence: US)
  Receive Date: 20240615
  Receipt Date: 20250419
  Transmission Date: 20250717
  Serious: Yes (Other)
  Sender: AUROBINDO
  Company Number: US-AUROBINDO-AUR-APL-2024-028877

PATIENT
  Age: 42 Month
  Sex: Male

DRUGS (5)
  1. RUFINAMIDE [Suspect]
     Active Substance: RUFINAMIDE
     Indication: Atonic seizures
     Dosage: 200 MILLIGRAM, TWO TIMES A DAY
     Route: 065
  2. LEVETIRACETAM [Concomitant]
     Active Substance: LEVETIRACETAM
     Indication: Atonic seizures
     Route: 065
  3. VALPROIC ACID [Concomitant]
     Active Substance: VALPROIC ACID
     Indication: Atonic seizures
     Route: 065
  4. VIGABATRIN [Concomitant]
     Active Substance: VIGABATRIN
     Indication: Atonic seizures
     Route: 065
  5. CLONAZEPAM [Concomitant]
     Active Substance: CLONAZEPAM
     Indication: Atonic seizures
     Route: 065

REACTIONS (1)
  - Seizure [Recovered/Resolved]
